FAERS Safety Report 23695164 (Version 1)
Quarter: 2024Q2

REPORT INFORMATION
  Report Type: Spontaneous
  Country: US (occurrence: US)
  Receive Date: 20240402
  Receipt Date: 20240402
  Transmission Date: 20240716
  Serious: No
  Sender: FDA-Public Use
  Company Number: ENDG23-04619

PATIENT
  Sex: Female

DRUGS (1)
  1. HYDROXYUREA [Suspect]
     Active Substance: HYDROXYUREA
     Indication: Product used for unknown indication
     Dosage: UNK UNKNOWN, UNKNOWN
     Route: 050
     Dates: start: 20230825

REACTIONS (4)
  - Nasal discomfort [Not Recovered/Not Resolved]
  - Pyrexia [Not Recovered/Not Resolved]
  - Wrong technique in product usage process [Unknown]
  - Product physical issue [Unknown]

NARRATIVE: CASE EVENT DATE: 20230101
